FAERS Safety Report 9790748 (Version 1)
Quarter: 2013Q4

REPORT INFORMATION
  Report Type: Spontaneous
  Country: FR (occurrence: FR)
  Receive Date: 20131231
  Receipt Date: 20131231
  Transmission Date: 20140711
  Serious: Yes (Death)
  Sender: FDA-Public Use
  Company Number: FR-PFIZER INC-2013371934

PATIENT
  Age: 21 Year
  Sex: Female

DRUGS (2)
  1. VORICONAZOLE [Suspect]
     Indication: TRICHOSPORON INFECTION
     Dosage: 600 MG/KG, DAILY
     Route: 042
     Dates: start: 20071128
  2. VORICONAZOLE [Suspect]
     Dosage: 400 MG/KG, DAILY
     Route: 042
     Dates: end: 20071206

REACTIONS (2)
  - Drug ineffective [Fatal]
  - Liver function test abnormal [Unknown]
